FAERS Safety Report 4665387-3 (Version None)
Quarter: 2005Q2

REPORT INFORMATION
  Report Type: 
  Country: None (occurrence: None)
  Receive Date: 20050518
  Receipt Date: 20050518
  Transmission Date: 20051028
  Serious: Yes (Life-Threatening, Hospitalization)
  Sender: FDA-Public Use
  Company Number: None

PATIENT
  Age: 35 Year
  Sex: Female
  Weight: 62 kg

DRUGS (14)
  1. NEOSYNEPHRINE [Suspect]
     Dosage: 1.4-10 MCG/KG/MIN
     Dates: start: 20050220, end: 20050303
  2. DOBUTAMINE HCL [Concomitant]
  3. DOPAMINE HCL [Concomitant]
  4. NOREPINEPHRINE [Concomitant]
  5. REGLAN [Concomitant]
  6. OXYCODONE HCL [Concomitant]
  7. DILANTIN [Concomitant]
  8. AUGMENTIN '125' [Concomitant]
  9. PEPCID [Concomitant]
  10. HEPARIN [Concomitant]
  11. ALBUTEROL [Concomitant]
  12. ATROVENT [Concomitant]
  13. ALPRAZOLAM [Concomitant]
  14. LEXAPRO [Concomitant]

REACTIONS (4)
  - ECHOCARDIOGRAM ABNORMAL [None]
  - MITRAL VALVE INCOMPETENCE [None]
  - MYOCARDIAL INFARCTION [None]
  - PLEURAL EFFUSION [None]
